FAERS Safety Report 5530845-6 (Version None)
Quarter: 2007Q4

REPORT INFORMATION
  Report Type: 
  Country: None (occurrence: None)
  Receive Date: 20071130
  Receipt Date: 20071127
  Transmission Date: 20080405
  Serious: Yes (Death, Hospitalization, Other)
  Sender: FDA-Public Use
  Company Number: FR-BRISTOL-MYERS SQUIBB COMPANY-13932892

PATIENT
  Age: 72 Year
  Sex: Female

DRUGS (3)
  1. SPRYCEL [Suspect]
     Indication: ACUTE LYMPHOCYTIC LEUKAEMIA
     Route: 048
     Dates: start: 20070911
  2. RASBURICASE [Concomitant]
  3. HEPARIN [Concomitant]
     Dates: start: 20070911

REACTIONS (6)
  - ANAEMIA [None]
  - CARDIO-RESPIRATORY ARREST [None]
  - PHLEBITIS [None]
  - PULMONARY EMBOLISM [None]
  - RENAL FAILURE [None]
  - TUMOUR LYSIS SYNDROME [None]
